FAERS Safety Report 4288658-1 (Version None)
Quarter: 2004Q1

REPORT INFORMATION
  Report Type: 
  Country: None (occurrence: None)
  Receive Date: 20040205
  Receipt Date: 20031230
  Transmission Date: 20041129
  Serious: Yes (Death)
  Sender: FDA-Public Use
  Company Number: BE-JNJFOC-20040200401

PATIENT
  Age: 76 Year
  Sex: Male

DRUGS (1)
  1. PROPULSID [Suspect]
     Indication: IMPAIRED GASTRIC EMPTYING
     Dosage: 20 MG, 2 IN 1 DAY, UNKNOWN
     Dates: start: 20030224, end: 20030523

REACTIONS (3)
  - BILE DUCT CANCER [None]
  - GENERAL PHYSICAL HEALTH DETERIORATION [None]
  - METASTASIS [None]
